FAERS Safety Report 24014626 (Version 2)
Quarter: 2024Q3

REPORT INFORMATION
  Report Type: Spontaneous
  Country: JP (occurrence: JP)
  Receive Date: 20240626
  Receipt Date: 20240715
  Transmission Date: 20241016
  Serious: Yes (Hospitalization)
  Sender: AMNEAL
  Company Number: JP-AMNEAL PHARMACEUTICALS-2024-AMRX-02310

PATIENT

DRUGS (3)
  1. ONGENTYS [Suspect]
     Active Substance: OPICAPONE
     Indication: Parkinson^s disease
     Dosage: UNK UNK, DAILY
     Route: 048
  2. ONGENTYS [Suspect]
     Active Substance: OPICAPONE
     Dosage: UNK UNK, DAILY
     Route: 048
     Dates: start: 20240612
  3. LEVODOPA [Concomitant]
     Active Substance: LEVODOPA
     Indication: Product used for unknown indication
     Dosage: UNK
     Route: 048

REACTIONS (2)
  - Hospitalisation [Unknown]
  - Wrong technique in product usage process [Unknown]
